FAERS Safety Report 10871950 (Version 1)
Quarter: 2015Q1

REPORT INFORMATION
  Report Type: Spontaneous
  Country: US (occurrence: None)
  Receive Date: 20150223
  Receipt Date: 20150223
  Transmission Date: 20150721
  Serious: Yes (Hospitalization)
  Sender: FDA-Public Use
  Company Number: None

PATIENT
  Age: 31 Year
  Sex: Female
  Weight: 90.72 kg

DRUGS (1)
  1. MODAFINIL 200 [Suspect]
     Active Substance: MODAFINIL
     Indication: NARCOLEPSY
     Route: 048
     Dates: start: 20141101, end: 20150220

REACTIONS (6)
  - Neck pain [None]
  - Gastric disorder [None]
  - Memory impairment [None]
  - Insomnia [None]
  - Coordination abnormal [None]
  - Drug effect decreased [None]

NARRATIVE: CASE EVENT DATE: 20150219
